FAERS Safety Report 7388304-4 (Version None)
Quarter: 2011Q1

REPORT INFORMATION
  Report Type: 
  Country: None (occurrence: None)
  Receive Date: 20110329
  Receipt Date: 20110329
  Transmission Date: 20110831
  Serious: Yes (Other)
  Sender: FDA-Public Use
  Company Number: None

PATIENT
  Age: 74 Year
  Sex: Female
  Weight: 60.3284 kg

DRUGS (2)
  1. LOVENOX [Suspect]
     Indication: PULMONARY EMBOLISM
     Dosage: LOVENOX DAILY INJECTION
  2. WARFARIN SODIUM [Suspect]
     Indication: THROMBOSIS
     Dosage: WARFARIN DAILY MOUTH
     Route: 048

REACTIONS (2)
  - TINNITUS [None]
  - SLEEP DISORDER [None]
